FAERS Safety Report 6317507-2 (Version None)
Quarter: 2009Q3

REPORT INFORMATION
  Report Type: 
  Country: None (occurrence: None)
  Receive Date: 20090821
  Receipt Date: 20090804
  Transmission Date: 20100115
  Serious: Yes (Hospitalization, Disabling)
  Sender: FDA-Public Use
  Company Number: US-BAYER-200926763NA

PATIENT
  Age: 51 Year
  Sex: Female
  Weight: 80 kg

DRUGS (8)
  1. CAMPATH [Suspect]
     Indication: MULTIPLE SCLEROSIS
     Dosage: TOTAL DAILY DOSE: 12 MG
     Route: 042
     Dates: start: 20090601, end: 20090605
  2. COLACE [Concomitant]
     Indication: CONSTIPATION
     Dates: start: 20090707
  3. AMBIEN [Concomitant]
     Dates: start: 20090707
  4. TIZANIDINE HCL [Concomitant]
     Indication: MUSCLE SPASTICITY
  5. CLONAZEPAM [Concomitant]
     Indication: BLEPHAROSPASM
  6. NORTRIPTYLINE HCL [Concomitant]
     Indication: DEPRESSION
  7. AMITIZA [Concomitant]
     Indication: CONSTIPATION
     Dosage: TOTAL DAILY DOSE: 48 ?G
     Route: 048
  8. GABAPENTIN [Concomitant]
     Indication: DYSAESTHESIA
     Dosage: TOTAL DAILY DOSE: 600 MG

REACTIONS (1)
  - INTRACRANIAL HYPOTENSION [None]
